FAERS Safety Report 11202807 (Version 3)
Quarter: 2015Q4

REPORT INFORMATION
  Report Type: Spontaneous
  Country: IT (occurrence: IT)
  Receive Date: 20150619
  Receipt Date: 20151106
  Transmission Date: 20160304
  Serious: Yes (Hospitalization)
  Sender: FDA-Public Use
  Company Number: IT-BAYER-2015-355304

PATIENT
  Age: 74 Year
  Sex: Female

DRUGS (2)
  1. ASPIRINETTA COMPRESSE [Suspect]
     Active Substance: ASPIRIN
     Indication: EMBOLISM
     Dosage: 100 MG, QD
     Route: 048
     Dates: start: 20090101
  2. HEPARIN [Interacting]
     Active Substance: HEPARIN SODIUM
     Dosage: UNK
     Route: 048

REACTIONS (5)
  - Asthenia [Recovered/Resolved]
  - Drug interaction [Recovered/Resolved]
  - Anaemia [Recovered/Resolved]
  - Melaena [Recovered/Resolved]
  - Hyperhidrosis [Recovered/Resolved]

NARRATIVE: CASE EVENT DATE: 20150331
